FAERS Safety Report 12270117 (Version 1)
Quarter: 2016Q2

REPORT INFORMATION
  Report Type: Spontaneous
  Country: SE (occurrence: SE)
  Receive Date: 20160415
  Receipt Date: 20160415
  Transmission Date: 20160815
  Serious: Yes (Hospitalization)
  Sender: FDA-Public Use
  Company Number: SE-TEVA-650022ISR

PATIENT
  Age: 85 Year
  Sex: Male

DRUGS (1)
  1. FENTANYL. [Suspect]
     Active Substance: FENTANYL
     Dosage: 25 MICROGRAM/H
     Route: 065

REACTIONS (2)
  - Somnolence [Recovered/Resolved]
  - Respiratory arrest [Recovered/Resolved]
